FAERS Safety Report 15265734 (Version 2)
Quarter: 2019Q3

REPORT INFORMATION
  Report Type: Spontaneous
  Country: US (occurrence: US)
  Receive Date: 20180810
  Receipt Date: 20190711
  Transmission Date: 20191004
  Serious: No
  Sender: FDA-Public Use
  Company Number: US-SA-2018SA218439

PATIENT
  Age: 75 Year
  Sex: Female

DRUGS (1)
  1. PRALUENT [Suspect]
     Active Substance: ALIROCUMAB
     Indication: HYPERLIPIDAEMIA
     Dosage: UNK UNK, OTHER
     Route: 058
     Dates: start: 20180101

REACTIONS (3)
  - Muscle spasms [Unknown]
  - Myalgia [Unknown]
  - Miliaria [Unknown]

NARRATIVE: CASE EVENT DATE: 20180704
